FAERS Safety Report 6817421-X (Version None)
Quarter: 2010Q3

REPORT INFORMATION
  Report Type: 
  Country: None (occurrence: None)
  Receive Date: 20100706
  Receipt Date: 20100629
  Transmission Date: 20110219
  Serious: Yes (Hospitalization)
  Sender: FDA-Public Use
  Company Number: A0867669A

PATIENT
  Age: 84 Year
  Sex: Male

DRUGS (11)
  1. COREG [Suspect]
     Indication: CARDIOMYOPATHY
     Dosage: 6.25MG TWICE PER DAY
     Route: 048
     Dates: start: 19950101
  2. CARVEDILOL [Suspect]
     Indication: CARDIOMYOPATHY
     Dosage: 25MG TWICE PER DAY
     Route: 048
  3. LASIX [Concomitant]
  4. DIGOXIN [Concomitant]
  5. LISINOPRIL [Concomitant]
  6. DETROL [Concomitant]
  7. VITAMIN B-12 [Concomitant]
  8. VITAMIN D2 [Concomitant]
  9. MULTIVITAMIN [Concomitant]
  10. ZOCOR [Concomitant]
  11. TRAVATAN [Concomitant]

REACTIONS (7)
  - ASTHENIA [None]
  - DIZZINESS [None]
  - DRUG INEFFECTIVE [None]
  - DYSPNOEA [None]
  - EJECTION FRACTION DECREASED [None]
  - FATIGUE [None]
  - NAUSEA [None]
